FAERS Safety Report 24999519 (Version 2)
Quarter: 2025Q1

REPORT INFORMATION
  Report Type: Spontaneous
  Country: US (occurrence: US)
  Receive Date: 20250222
  Receipt Date: 20250307
  Transmission Date: 20250408
  Serious: No
  Sender: SANOFI AVENTIS
  Company Number: US-SA-2025SA050257

PATIENT
  Age: 3 Year
  Sex: Female
  Weight: 15.73 kg

DRUGS (5)
  1. DUPIXENT [Suspect]
     Active Substance: DUPILUMAB
     Indication: Dermatitis atopic
     Dosage: 300 MG, Q4W
     Route: 058
     Dates: start: 202502
  2. TRIAMCINOLONE ACETONIDE [Concomitant]
     Active Substance: TRIAMCINOLONE ACETONIDE
  3. MOMETASONE FUROATE [Concomitant]
     Active Substance: MOMETASONE FUROATE
  4. TACROLIMUS [Concomitant]
     Active Substance: TACROLIMUS
  5. DESOXIMETASONE [Concomitant]
     Active Substance: DESOXIMETASONE

REACTIONS (5)
  - Swelling face [Unknown]
  - Sleep disorder due to a general medical condition [Recovering/Resolving]
  - Influenza [Recovering/Resolving]
  - Eye pain [Recovered/Resolved]
  - Rash [Unknown]

NARRATIVE: CASE EVENT DATE: 20250201
